FAERS Safety Report 9891994 (Version 5)
Quarter: 2014Q2

REPORT INFORMATION
  Report Type: Spontaneous
  Country: CO (occurrence: CO)
  Receive Date: 20140212
  Receipt Date: 20140603
  Transmission Date: 20141212
  Serious: Yes (Death, Hospitalization, Other)
  Sender: FDA-Public Use
  Company Number: CO-TEVA-461818USA

PATIENT
  Age: 78 Year
  Sex: Male
  Weight: 65 kg

DRUGS (17)
  1. RIBOMUSTIN [Suspect]
     Indication: MANTLE CELL LYMPHOMA
     Route: 042
     Dates: start: 20131016, end: 20140205
  2. RIBOMUSTIN [Suspect]
     Indication: MANTLE CELL LYMPHOMA
     Route: 042
     Dates: start: 20131106
  3. RIBOMUSTIN [Suspect]
     Indication: MANTLE CELL LYMPHOMA
     Route: 042
     Dates: start: 20131204
  4. RIBOMUSTIN [Suspect]
     Route: 042
     Dates: start: 20140212, end: 20140214
  5. RITUXIMAB [Suspect]
     Indication: MANTLE CELL LYMPHOMA
     Dosage: UNKNOWN
     Dates: start: 20131016
  6. RITUXIMAB [Suspect]
     Indication: MANTLE CELL LYMPHOMA
     Dosage: UNKNOWN
     Dates: start: 20131106
  7. RITUXIMAB [Suspect]
     Indication: MANTLE CELL LYMPHOMA
     Dosage: UNKNOWN
     Dates: start: 20131204
  8. RITUXIMAB [Suspect]
     Dosage: 375 MILLIGRAM DAILY;
     Dates: start: 20140214, end: 20140214
  9. RITUXIMAB [Suspect]
     Dosage: UNKNOWN
     Dates: start: 20140212, end: 20140214
  10. RITUXIMAB [Suspect]
     Dosage: UNKNOWN
  11. ESOMEPRAZOLE [Concomitant]
     Indication: GASTRITIS
     Route: 048
     Dates: start: 20131105
  12. ACICLOVIR [Concomitant]
     Indication: HERPES ZOSTER
     Route: 042
     Dates: start: 20140203, end: 20140217
  13. RITUXIMAB [Concomitant]
     Indication: MANTLE CELL LYMPHOMA
     Dosage: 375 MILLIGRAM DAILY;
     Dates: start: 20140214
  14. CARBAMAZEPINE [Concomitant]
     Indication: HERPES ZOSTER
     Route: 048
     Dates: start: 20140203, end: 20140220
  15. DEXAMETHASONE [Concomitant]
     Indication: HERPES ZOSTER
     Dosage: 4 MILLIGRAM DAILY;
     Route: 030
     Dates: start: 20140203, end: 20140213
  16. GLIBENCLAMIDE [Concomitant]
     Route: 048
     Dates: start: 2007
  17. RIVOTRIL [Concomitant]
     Route: 048
     Dates: start: 2007

REACTIONS (12)
  - Infection [Fatal]
  - Pneumonia [Recovered/Resolved]
  - Cholecystitis [Recovered/Resolved]
  - Herpes zoster [Recovering/Resolving]
  - Abdominal discomfort [Recovered/Resolved]
  - Abdominal pain upper [Recovered/Resolved]
  - Decreased appetite [Unknown]
  - Muscular weakness [Unknown]
  - Hyperuricaemia [Recovered/Resolved]
  - Nausea [Recovered/Resolved]
  - Lymphadenopathy [Unknown]
  - Neutropenia [Recovered/Resolved]
